FAERS Safety Report 9804679 (Version 2)
Quarter: 2014Q1

REPORT INFORMATION
  Report Type: Spontaneous
  Country: US (occurrence: US)
  Receive Date: 20140108
  Receipt Date: 20140108
  Transmission Date: 20141002
  Serious: Yes (Other)
  Sender: FDA-Public Use
  Company Number: US-US-EMD SERONO, INC.-238696J08USA

PATIENT
  Age: 38 Year
  Sex: Female
  Weight: 84 kg

DRUGS (7)
  1. REBIF [Suspect]
     Indication: MULTIPLE SCLEROSIS
     Route: 058
     Dates: start: 20080711, end: 201207
  2. PLAQUENIL [Concomitant]
     Indication: SYSTEMIC LUPUS ERYTHEMATOSUS
     Route: 065
     Dates: start: 1998
  3. EFFEXOR [Concomitant]
     Indication: POST-TRAUMATIC STRESS DISORDER
     Route: 065
     Dates: start: 1995
  4. ULTRAM ER [Concomitant]
     Indication: FIBROMYALGIA
     Route: 065
     Dates: start: 200808
  5. AMANTADINE [Concomitant]
     Indication: FATIGUE
     Route: 065
     Dates: start: 200806
  6. PHENERGAN [Concomitant]
     Indication: PREMEDICATION
     Route: 065
  7. ZANAFLEX [Concomitant]
     Indication: MUSCLE SPASMS
     Route: 065

REACTIONS (7)
  - Throat tightness [Recovering/Resolving]
  - Pneumonia [Recovering/Resolving]
  - Herpes zoster [Recovering/Resolving]
  - Varicella [Recovering/Resolving]
  - Injection site erythema [Unknown]
  - Injection site papule [Unknown]
  - Injection site pain [Unknown]
